FAERS Safety Report 18988351 (Version 3)
Quarter: 2021Q2

REPORT INFORMATION
  Report Type: Spontaneous
  Country: US (occurrence: US)
  Receive Date: 20210309
  Receipt Date: 20210521
  Transmission Date: 20210717
  Serious: Yes (Other)
  Sender: FDA-Public Use
  Company Number: US-GLAXOSMITHKLINE-US2021AMR058104

PATIENT
  Age: 73 Year
  Sex: Male

DRUGS (1)
  1. ALBUTEROL SULFATE. [Suspect]
     Active Substance: ALBUTEROL SULFATE
     Indication: PRODUCT USED FOR UNKNOWN INDICATION
     Dosage: UNK (ALBUTEROL SULFATE HFA ? 90 MCG, 18G/200 METERED)
     Route: 055

REACTIONS (7)
  - Retching [Unknown]
  - Respiratory tract irritation [Unknown]
  - Foreign body in throat [Unknown]
  - Pulmonary pain [Unknown]
  - Insomnia [Unknown]
  - Cough [Unknown]
  - Product complaint [Unknown]

NARRATIVE: CASE EVENT DATE: 20210303
